FAERS Safety Report 9370924 (Version 3)
Quarter: 2013Q3

REPORT INFORMATION
  Report Type: Spontaneous
  Country: JP (occurrence: JP)
  Receive Date: 20130627
  Receipt Date: 20130802
  Transmission Date: 20140515
  Serious: Yes (Death, Life-Threatening, Other)
  Sender: FDA-Public Use
  Company Number: JP-ABBOTT-12P-087-1012782-00

PATIENT
  Age: 73 Year
  Sex: Male
  Weight: 50 kg

DRUGS (5)
  1. HUMIRA [Suspect]
     Indication: PRODUCT USED FOR UNKNOWN INDICATION
     Route: 058
     Dates: start: 20110412, end: 20121011
  2. PROGRAF [Suspect]
     Indication: RHEUMATOID ARTHRITIS
     Dosage: 1 MG DAILY
     Route: 048
  3. PROGRAF [Suspect]
     Route: 048
     Dates: start: 20090515
  4. METHOTREXATE [Suspect]
     Indication: RHEUMATOID ARTHRITIS
     Route: 048
  5. METHOTREXATE [Suspect]
     Dates: start: 19980515

REACTIONS (11)
  - Keratinising squamous cell carcinoma of nasopharynx [Fatal]
  - Disseminated intravascular coagulation [Recovered/Resolved]
  - Renal failure [Fatal]
  - Staphylococcal sepsis [Recovered/Resolved]
  - Candida infection [Unknown]
  - Pseudomonas infection [Unknown]
  - Nephrotic syndrome [Unknown]
  - Pneumonia [Unknown]
  - Sinusitis [Unknown]
  - C-reactive protein increased [Unknown]
  - Rhinitis allergic [Unknown]
